FAERS Safety Report 8112692-4 (Version None)
Quarter: 2012Q1

REPORT INFORMATION
  Report Type: 
  Country: None (occurrence: None)
  Receive Date: 20120203
  Receipt Date: 20120124
  Transmission Date: 20120608
  Serious: Yes (Hospitalization, Other)
  Sender: FDA-Public Use
  Company Number: DE-ABBOTT-11P-062-0870699-00

PATIENT
  Sex: Male
  Weight: 55 kg

DRUGS (2)
  1. HUMIRA [Suspect]
     Indication: CROHN'S DISEASE
     Route: 058
     Dates: start: 20100515, end: 20110810
  2. HUMIRA [Suspect]
     Route: 058
     Dates: start: 20111007, end: 20120101

REACTIONS (6)
  - ABSCESS INTESTINAL [None]
  - ENTEROCUTANEOUS FISTULA [None]
  - ERYTHEMA [None]
  - GASTRIC ATONY [None]
  - HYPOKALAEMIA [None]
  - ILEUS PARALYTIC [None]
